FAERS Safety Report 4733675-8 (Version None)
Quarter: 2005Q3

REPORT INFORMATION
  Report Type: 
  Country: None (occurrence: None)
  Receive Date: 20050729
  Receipt Date: 20050525
  Transmission Date: 20060218
  Serious: No
  Sender: FDA-Public Use
  Company Number: COT_0082_2005

PATIENT
  Age: 48 Year
  Sex: Female
  Weight: 83.9154 kg

DRUGS (5)
  1. VENTAVIS [Suspect]
     Indication: PULMONARY HYPERTENSION
     Dosage: 45 MCG DAILY IH
     Route: 055
  2. VENTAVIS [Suspect]
  3. VICODIN [Concomitant]
  4. TRACLEER [Concomitant]
  5. VIAGRA [Concomitant]

REACTIONS (6)
  - CONDITION AGGRAVATED [None]
  - FIBROMYALGIA [None]
  - HYPOAESTHESIA ORAL [None]
  - INFLUENZA LIKE ILLNESS [None]
  - PAIN IN EXTREMITY [None]
  - PARAESTHESIA ORAL [None]
